FAERS Safety Report 5390058-8 (Version None)
Quarter: 2007Q3

REPORT INFORMATION
  Report Type: 
  Country: None (occurrence: None)
  Receive Date: 20070718
  Receipt Date: 20070705
  Transmission Date: 20080115
  Serious: Yes (Death, Other)
  Sender: FDA-Public Use
  Company Number: DE-GENENTECH-241540

PATIENT
  Sex: Female
  Weight: 43.991 kg

DRUGS (5)
  1. AVASTIN [Suspect]
     Indication: RECTAL CANCER
     Dosage: 225 MG, Q2W
     Route: 042
     Dates: start: 20070316, end: 20070403
  2. IRINOTECAN HCL [Concomitant]
     Indication: DRUG USE FOR UNKNOWN INDICATION
     Dosage: 110 MG, 1/WEEK
     Route: 042
     Dates: start: 20070308, end: 20070403
  3. FLUOROURACIL [Concomitant]
     Indication: DRUG USE FOR UNKNOWN INDICATION
     Dosage: 2800 MG, 1/WEEK
     Route: 042
     Dates: start: 20070308, end: 20070403
  4. DOLASETRON [Concomitant]
     Indication: DRUG USE FOR UNKNOWN INDICATION
     Dosage: 100 MG, 1/WEEK
     Route: 042
     Dates: start: 20070308, end: 20070403
  5. OMEPRAZOLE [Concomitant]
     Indication: DRUG USE FOR UNKNOWN INDICATION

REACTIONS (4)
  - ANAEMIA [None]
  - COLONIC FISTULA [None]
  - PULMONARY EMBOLISM [None]
  - SEPSIS [None]
